FAERS Safety Report 5702558-9 (Version None)
Quarter: 2008Q2

REPORT INFORMATION
  Report Type: 
  Country: None (occurrence: None)
  Receive Date: 20080411
  Receipt Date: 20070913
  Transmission Date: 20081010
  Serious: No
  Sender: FDA-Public Use
  Company Number: US-ASTRAZENECA-2007UW18113

PATIENT
  Age: 44 Year
  Sex: Female
  Weight: 61.2 kg

DRUGS (2)
  1. TENORMIN [Suspect]
     Indication: HYPERTENSION
     Route: 048
     Dates: start: 19930101, end: 20070701
  2. TENORMIN [Suspect]
     Route: 048
     Dates: start: 20070701

REACTIONS (4)
  - CHEST DISCOMFORT [None]
  - DISCOMFORT [None]
  - FEELING ABNORMAL [None]
  - MUSCLE SPASMS [None]
